FAERS Safety Report 21006145 (Version 3)
Quarter: 2022Q4

REPORT INFORMATION
  Report Type: Spontaneous
  Country: JP (occurrence: JP)
  Receive Date: 20220624
  Receipt Date: 20221010
  Transmission Date: 20230113
  Serious: Yes (Hospitalization)
  Sender: FDA-Public Use
  Company Number: JP-Eisai-202203606_LEN-EC_P_1

PATIENT
  Age: 44 Year
  Sex: Female

DRUGS (13)
  1. LENVIMA [Suspect]
     Active Substance: LENVATINIB
     Indication: Endometrial cancer
     Route: 048
     Dates: start: 20220420, end: 20220610
  2. KEYTRUDA [Suspect]
     Active Substance: PEMBROLIZUMAB
     Indication: Endometrial cancer
     Route: 041
     Dates: start: 20220420, end: 20220608
  3. KEYTRUDA [Suspect]
     Active Substance: PEMBROLIZUMAB
     Route: 041
     Dates: start: 20220810, end: 20220810
  4. ACETAMINOPHEN [Concomitant]
     Active Substance: ACETAMINOPHEN
     Indication: Pain
     Route: 048
     Dates: start: 20220419, end: 20220613
  5. OXYCONTIN [Concomitant]
     Active Substance: OXYCODONE HYDROCHLORIDE
     Indication: Pain
     Route: 048
     Dates: start: 20220409
  6. OXINORM [Concomitant]
     Indication: Pain
     Route: 048
     Dates: start: 20220409
  7. NOVAMIN [Concomitant]
     Indication: Pain
     Route: 048
     Dates: start: 20220419
  8. L ESTROGEL [Concomitant]
     Indication: Artificial menopause
     Dosage: JELLY
     Dates: start: 20210602
  9. MAGNESIUM OXIDE [Concomitant]
     Active Substance: MAGNESIUM OXIDE
     Indication: Constipation
     Route: 048
     Dates: start: 20210205
  10. LANSOPRAZOLE [Concomitant]
     Active Substance: LANSOPRAZOLE
     Indication: Pancreatitis
     Route: 048
     Dates: start: 20220608
  11. CEFOPERAZONE SODIUM\SULBACTAM SODIUM [Concomitant]
     Active Substance: CEFOPERAZONE SODIUM\SULBACTAM SODIUM
     Indication: Pancreatitis
     Route: 042
     Dates: start: 20220614, end: 20220620
  12. LEVOTHYROXINE [Concomitant]
     Active Substance: LEVOTHYROXINE
     Indication: Hypothyroidism
     Route: 048
     Dates: start: 20220722
  13. IRBESARTAN [Concomitant]
     Active Substance: IRBESARTAN
     Indication: Hypertension
     Route: 048
     Dates: start: 20220518

REACTIONS (4)
  - Cholangitis [Unknown]
  - Pancreatitis [Recovered/Resolved]
  - Hypertension [Recovered/Resolved]
  - Haemorrhagic cholecystitis [Unknown]

NARRATIVE: CASE EVENT DATE: 20220101
